FAERS Safety Report 7865001-X (Version None)
Quarter: 2011Q4

REPORT INFORMATION
  Report Type: 
  Country: None (occurrence: None)
  Receive Date: 20111028
  Receipt Date: 20100928
  Transmission Date: 20120403
  Serious: No
  Sender: FDA-Public Use
  Company Number: US-GLAXOSMITHKLINE-A0883770A

PATIENT
  Age: 51 Year
  Sex: Female

DRUGS (6)
  1. OMEPRAZOLE [Concomitant]
  2. POTASSIUM [Concomitant]
  3. TRIAMTERENE AND HYDROCHLOROTHIAZIDE [Concomitant]
  4. ADVAIR DISKUS 100/50 [Suspect]
     Indication: ASTHMA
     Route: 055
     Dates: start: 20100926
  5. OXYBUTYNIN [Concomitant]
  6. ALPRAZOLAM [Concomitant]

REACTIONS (2)
  - DRY MOUTH [None]
  - ORAL MUCOSAL ERUPTION [None]
